FAERS Safety Report 6288035-8 (Version None)
Quarter: 2009Q3

REPORT INFORMATION
  Report Type: 
  Country: None (occurrence: None)
  Receive Date: 20090729
  Receipt Date: 20090722
  Transmission Date: 20100115
  Serious: Yes (Hospitalization, Congenital Anomaly)
  Sender: FDA-Public Use
  Company Number: US-ROCHE-645810

PATIENT
  Sex: Female

DRUGS (3)
  1. VALIUM [Suspect]
     Dosage: FREQUENCY: EVERY 4-6 HOURS. CO-INDICATION: BACK PAINS
     Route: 048
     Dates: start: 19800101
  2. DIAZEPAM [Concomitant]
     Route: 065
  3. VALTREX [Concomitant]

REACTIONS (2)
  - CEREBROVASCULAR ACCIDENT [None]
  - INTRACARDIAC MASS [None]
